FAERS Safety Report 11516320 (Version 1)
Quarter: 2015Q3

REPORT INFORMATION
  Report Type: Spontaneous
  Country: US (occurrence: None)
  Receive Date: 20150916
  Receipt Date: 20150916
  Transmission Date: 20151125
  Serious: Yes (Other)
  Sender: FDA-Public Use
  Company Number: None

PATIENT
  Age: 101 Year
  Sex: Female
  Weight: 14.52 kg

DRUGS (1)
  1. EXJADE [Suspect]
     Active Substance: DEFERASIROX
     Indication: IRON OVERLOAD
     Dosage: ONE TAB
     Route: 048
     Dates: start: 20150430, end: 20150915

REACTIONS (1)
  - Renal impairment [None]

NARRATIVE: CASE EVENT DATE: 201507
